FAERS Safety Report 20064831 (Version 1)
Quarter: 2021Q4

REPORT INFORMATION
  Report Type: Spontaneous
  Country: CN (occurrence: None)
  Receive Date: 20211112
  Receipt Date: 20211112
  Transmission Date: 20220303
  Serious: Yes (Other)
  Sender: FDA-Public Use
  Company Number: CN-ROCHE-2955089

PATIENT
  Age: 24 Year
  Sex: Female
  Weight: 79 kg

DRUGS (5)
  1. MABTHERA [Suspect]
     Active Substance: RITUXIMAB
     Indication: Hairy cell leukaemia
     Route: 041
     Dates: start: 20211012
  2. MABTHERA [Suspect]
     Active Substance: RITUXIMAB
     Route: 041
     Dates: start: 20211012
  3. SODIUM CHLORIDE [Concomitant]
     Active Substance: SODIUM CHLORIDE
     Indication: Unevaluable event
     Route: 041
     Dates: start: 20211012
  4. SODIUM CHLORIDE [Concomitant]
     Active Substance: SODIUM CHLORIDE
     Route: 041
     Dates: start: 20211012
  5. RECOMBINANT HUMAN GRANULOCYTE STIMULATING FACTOR (UNK INGREDIENTS) [Concomitant]
     Dosage: 300 UG ONCE PER DAY
     Route: 058

REACTIONS (2)
  - Neutrophil count decreased [Unknown]
  - Off label use [Unknown]

NARRATIVE: CASE EVENT DATE: 20211031
